FAERS Safety Report 8164256-4 (Version None)
Quarter: 2012Q1

REPORT INFORMATION
  Report Type: 
  Country: None (occurrence: None)
  Receive Date: 20120224
  Receipt Date: 20120109
  Transmission Date: 20120608
  Serious: No
  Sender: FDA-Public Use
  Company Number: US-ASTRAZENECA-2012SE01616

PATIENT
  Sex: Female

DRUGS (1)
  1. VIMOVO [Suspect]
     Indication: ARTHRITIS
     Route: 048

REACTIONS (3)
  - TYPE 1 DIABETES MELLITUS [None]
  - INAPPROPRIATE SCHEDULE OF DRUG ADMINISTRATION [None]
  - BLOOD GLUCOSE DECREASED [None]
